FAERS Safety Report 8495419-6 (Version None)
Quarter: 2012Q3

REPORT INFORMATION
  Report Type: 
  Country: None (occurrence: None)
  Receive Date: 20120709
  Receipt Date: 20120628
  Transmission Date: 20120928
  Serious: Yes (Other)
  Sender: FDA-Public Use
  Company Number: BE-ASTRAZENECA-2012SE33965

PATIENT
  Sex: Female

DRUGS (4)
  1. D-CURE [Concomitant]
  2. SPASMOMEN [Concomitant]
  3. CRESTOR [Suspect]
     Indication: HYPERCHOLESTEROLAEMIA
     Route: 048
     Dates: start: 20120101, end: 20120401
  4. ELTHYROXINE [Concomitant]
     Indication: THYROID DISORDER

REACTIONS (2)
  - ALOPECIA [None]
  - MUSCLE SPASMS [None]
